FAERS Safety Report 7121718-6 (Version None)
Quarter: 2010Q4

REPORT INFORMATION
  Report Type: 
  Country: None (occurrence: None)
  Receive Date: 20101124
  Receipt Date: 20101117
  Transmission Date: 20110411
  Serious: Yes (Death, Hospitalization, Other)
  Sender: FDA-Public Use
  Company Number: US-JNJFOC-20101006304

PATIENT
  Sex: Male
  Weight: 65.77 kg

DRUGS (1)
  1. LEVAQUIN [Suspect]
     Indication: ATELECTASIS
     Route: 048

REACTIONS (13)
  - ANXIETY [None]
  - CHILLS [None]
  - DEATH [None]
  - FEELING ABNORMAL [None]
  - FULL BLOOD COUNT ABNORMAL [None]
  - HYPERTENSION [None]
  - LIVER FUNCTION TEST ABNORMAL [None]
  - LIVER INJURY [None]
  - MALAISE [None]
  - MULTI-ORGAN FAILURE [None]
  - PYREXIA [None]
  - SPLENOMEGALY [None]
  - YELLOW SKIN [None]
